FAERS Safety Report 9417462 (Version 1)
Quarter: 2013Q3

REPORT INFORMATION
  Report Type: Spontaneous
  Country: US (occurrence: US)
  Receive Date: 20130724
  Receipt Date: 20130724
  Transmission Date: 20140515
  Serious: No
  Sender: FDA-Public Use
  Company Number: US-MYLANLABS-2012S1011674

PATIENT
  Age: 48 Year
  Sex: Female
  Weight: 74.84 kg

DRUGS (1)
  1. TRIAMTERENE AND HYDROCHLOROTHIAZIDE CAPSULES [Suspect]
     Indication: BLOOD PRESSURE INCREASED
     Route: 048
     Dates: start: 2004

REACTIONS (6)
  - Cardiac flutter [Recovered/Resolved]
  - Hypoaesthesia [Recovered/Resolved]
  - Lethargy [Recovered/Resolved]
  - Eye pain [Recovered/Resolved]
  - Hypoaesthesia oral [Recovered/Resolved]
  - Hypoacusis [Recovered/Resolved]
